FAERS Safety Report 4298925-3 (Version None)
Quarter: 2004Q1

REPORT INFORMATION
  Report Type: 
  Country: None (occurrence: None)
  Receive Date: 20040219
  Receipt Date: 20040209
  Transmission Date: 20041129
  Serious: Yes (Other)
  Sender: FDA-Public Use
  Company Number: 200410302JP

PATIENT
  Age: 62 Year
  Sex: Male

DRUGS (3)
  1. TAXOTERE [Suspect]
     Indication: PHARYNGEAL CANCER STAGE UNSPECIFIED
     Route: 041
     Dates: start: 20040127, end: 20040127
  2. CISPLATIN [Suspect]
     Indication: PHARYNGEAL CANCER STAGE UNSPECIFIED
     Route: 041
     Dates: start: 20040127, end: 20040127
  3. FLUOROURACIL [Suspect]
     Indication: PHARYNGEAL CANCER STAGE UNSPECIFIED
     Route: 041
     Dates: start: 20040127, end: 20040127

REACTIONS (1)
  - ACUTE GENERALISED EXANTHEMATOUS PUSTULOSIS [None]
